FAERS Safety Report 18726304 (Version 3)
Quarter: 2021Q1

REPORT INFORMATION
  Report Type: Report from Study
  Country: US (occurrence: US)
  Receive Date: 20210111
  Receipt Date: 20210125
  Transmission Date: 20210419
  Serious: Yes (Hospitalization)
  Sender: FDA-Public Use
  Company Number: US-PFIZER INC-2021010697

PATIENT
  Age: 54 Year
  Sex: Female
  Weight: 67 kg

DRUGS (9)
  1. SYNTHROID [Concomitant]
     Active Substance: LEVOTHYROXINE SODIUM
     Dosage: UNK
     Route: 048
     Dates: start: 20131126
  2. BUSPIRONE [Concomitant]
     Active Substance: BUSPIRONE HYDROCHLORIDE
     Dosage: UNK
     Route: 048
     Dates: start: 20200114
  3. AMCENESTRANT. [Suspect]
     Active Substance: AMCENESTRANT
     Dosage: 100 MG, CYCLIC  (1X/DAY, STUDY CYCLE 12, DAY UNKNOWN)
     Route: 048
     Dates: start: 20201229, end: 20201229
  4. XANAX [Concomitant]
     Active Substance: ALPRAZOLAM
     Dosage: UNK
     Route: 048
     Dates: start: 20200128
  5. PALBOCICLIB [Suspect]
     Active Substance: PALBOCICLIB
     Dosage: 125 MG, CYCLIC (1X/DAY, STUDY CYCLE 12, DAY UNKNOWN)
     Route: 048
     Dates: start: 20201229, end: 20201229
  6. IBUPROFEN. [Concomitant]
     Active Substance: IBUPROFEN
     Dosage: UNK
     Route: 048
     Dates: start: 20200128
  7. AMCENESTRANT. [Suspect]
     Active Substance: AMCENESTRANT
     Indication: BREAST CANCER METASTATIC
     Dosage: 100 MG, CYCLIC (1X/DAY, STUDY CYCLE 1, DAY 1)
     Route: 048
     Dates: start: 20191217, end: 20191217
  8. UNISOM SLEEPMELTS [Concomitant]
     Active Substance: DIPHENHYDRAMINE HYDROCHLORIDE
     Dosage: UNK
     Route: 048
     Dates: start: 20200218
  9. PALBOCICLIB [Suspect]
     Active Substance: PALBOCICLIB
     Indication: BREAST CANCER METASTATIC
     Dosage: 125 MG, CYCLIC (1X/DAY, STUDY CYCLE 1, DAY 1)
     Route: 048
     Dates: start: 20191217, end: 20191217

REACTIONS (1)
  - Abdominal pain [Not Recovered/Not Resolved]

NARRATIVE: CASE EVENT DATE: 20201229
